FAERS Safety Report 7658683-9 (Version None)
Quarter: 2011Q3

REPORT INFORMATION
  Report Type: 
  Country: None (occurrence: None)
  Receive Date: 20110804
  Receipt Date: 20110804
  Transmission Date: 20111222
  Serious: Yes (Other)
  Sender: FDA-Public Use
  Company Number: None

PATIENT
  Age: 32 Year
  Sex: Female
  Weight: 58.9676 kg

DRUGS (3)
  1. GEODON [Suspect]
     Indication: POST-TRAUMATIC STRESS DISORDER
     Dosage: ORAL
     Route: 048
  2. GEODON [Suspect]
     Indication: SCHIZOPHRENIA
     Dosage: ORAL
     Route: 048
  3. TRILEPTAL [Suspect]
     Indication: HYPOMANIA
     Dosage: ORAL
     Route: 048

REACTIONS (8)
  - RASH [None]
  - PAIN [None]
  - PRURITUS [None]
  - HYPOAESTHESIA [None]
  - ERYTHEMA [None]
  - HEADACHE [None]
  - CHOKING SENSATION [None]
  - ASTHMA [None]
